FAERS Safety Report 10949221 (Version 1)
Quarter: 2015Q1

REPORT INFORMATION
  Report Type: Report from Study
  Country: US (occurrence: US)
  Receive Date: 20150324
  Receipt Date: 20150324
  Transmission Date: 20150721
  Serious: Yes (Other)
  Sender: FDA-Public Use
  Company Number: US-ABBVIE-15K-163-1361807-00

PATIENT
  Age: 23 Year
  Sex: Female

DRUGS (1)
  1. HUMIRA [Suspect]
     Active Substance: ADALIMUMAB
     Indication: CROHN^S DISEASE
     Route: 065
     Dates: start: 20150306, end: 20150306

REACTIONS (7)
  - Seizure [Unknown]
  - Head injury [Unknown]
  - Vomiting [Recovering/Resolving]
  - Chest pain [Recovered/Resolved with Sequelae]
  - Nausea [Recovering/Resolving]
  - Dizziness [Recovering/Resolving]
  - Disorientation [Unknown]

NARRATIVE: CASE EVENT DATE: 20150313
